FAERS Safety Report 9670153 (Version 3)
Quarter: 2013Q4

REPORT INFORMATION
  Report Type: Spontaneous
  Country: FR (occurrence: FR)
  Receive Date: 20131105
  Receipt Date: 20131227
  Transmission Date: 20140711
  Serious: Yes (Hospitalization)
  Sender: FDA-Public Use
  Company Number: PHHY2013FR122814

PATIENT
  Age: 64 Year
  Sex: Female

DRUGS (14)
  1. CUBICIN [Suspect]
     Dosage: 5 MG/KG, QD
     Route: 065
     Dates: start: 20130826, end: 20130904
  2. VANCOMYCIN [Suspect]
     Indication: ANTIBIOTIC THERAPY
     Dosage: 1.25 G, Q12H
     Route: 065
     Dates: start: 20130801, end: 20130812
  3. VANCOMYCIN [Suspect]
     Dosage: 1.25 G, Q12H
     Route: 042
     Dates: start: 20130814, end: 20130826
  4. TRAMADOL [Suspect]
     Dosage: 100 MG, BID
     Route: 048
     Dates: start: 20130801
  5. ZYVOXID [Suspect]
     Dosage: 600 MG, BID
     Route: 048
     Dates: start: 20130812, end: 20130814
  6. TAZOCILLINE [Suspect]
     Route: 065
     Dates: start: 20130801, end: 20130904
  7. INEXIUM//ESOMEPRAZOLE MAGNESIUM [Suspect]
     Dosage: 40 MG, QD
     Route: 048
     Dates: start: 20130801
  8. MORPHINE [Suspect]
     Dosage: 7.5 MG, 6QD
     Route: 058
     Dates: start: 20130801, end: 20130805
  9. ACUPAN [Suspect]
     Dosage: 20 MG, QID
     Route: 042
     Dates: start: 20130801
  10. PERFALGAN [Concomitant]
     Dosage: 1 G, QID
     Dates: start: 20130801, end: 20130804
  11. NICOPATCH [Concomitant]
     Route: 062
  12. PARACETAMOL [Concomitant]
     Dosage: 3 G, PRN
  13. LOVENOX [Concomitant]
     Dosage: 4000 IU/L, QD
     Route: 058
  14. SIFROL [Concomitant]

REACTIONS (11)
  - Liver injury [Recovering/Resolving]
  - Rash [Recovered/Resolved]
  - Eosinophilia [Recovering/Resolving]
  - Pyrexia [Unknown]
  - Face oedema [Unknown]
  - Cholestasis [Unknown]
  - Nausea [Unknown]
  - Hypersensitivity [Unknown]
  - Thrombophlebitis superficial [Unknown]
  - Catheter site phlebitis [Unknown]
  - Chills [Recovered/Resolved]
